FAERS Safety Report 5046022-1 (Version None)
Quarter: 2006Q3

REPORT INFORMATION
  Report Type: 
  Country: None (occurrence: None)
  Receive Date: 20060710
  Receipt Date: 20060627
  Transmission Date: 20061208
  Serious: Yes (Other)
  Sender: FDA-Public Use
  Company Number: PHBS2006IT10027

PATIENT
  Age: 58 Year
  Sex: Male

DRUGS (8)
  1. CYCLOSPORINE [Suspect]
     Indication: RENAL TRANSPLANT
     Dosage: 3 MG/KG/D
     Dates: start: 19950201
  2. PREDNISONE (NGX) [Suspect]
     Indication: RENAL TRANSPLANT
     Dosage: 8 MG/D
     Dates: start: 19950201
  3. ANTITHYMOCYTE IMMUNOGLOBULIN (RABBIT) [Suspect]
     Indication: RENAL TRANSPLANT
     Dates: start: 19950201
  4. VORICONAZOLE [Suspect]
     Dosage: 6 MG/KG, BID
  5. VORICONAZOLE [Suspect]
     Dosage: 3 MG/KG, BID
     Route: 042
  6. VORICONAZOLE [Suspect]
     Dosage: 200 MG, BID
  7. VORICONAZOLE [Suspect]
     Dosage: 150 MG, BID
     Route: 048
  8. VORICONAZOLE [Suspect]
     Dosage: 150 MG, BID
     Route: 048

REACTIONS (23)
  - ALANINE AMINOTRANSFERASE INCREASED [None]
  - ASPARTATE AMINOTRANSFERASE INCREASED [None]
  - BLOOD CREATININE INCREASED [None]
  - BLOOD UREA INCREASED [None]
  - CONJUNCTIVAL HAEMORRHAGE [None]
  - CYTOMEGALOVIRUS INFECTION [None]
  - ERYTHEMA [None]
  - HAEMATOCRIT DECREASED [None]
  - HAEMOGLOBIN DECREASED [None]
  - HEPATOTOXICITY [None]
  - HERPES ZOSTER [None]
  - NECROSIS [None]
  - NEPHROPATHY TOXIC [None]
  - OSTEONECROSIS [None]
  - PAIN IN EXTREMITY [None]
  - PYREXIA [None]
  - RED BLOOD CELL COUNT DECREASED [None]
  - RENAL LYMPHOCELE [None]
  - SCEDOSPORIUM INFECTION [None]
  - SKIN ULCER [None]
  - SUBCUTANEOUS ABSCESS [None]
  - TENDON RUPTURE [None]
  - WHITE BLOOD CELL COUNT INCREASED [None]
